FAERS Safety Report 21546001 (Version 1)
Quarter: 2022Q4

REPORT INFORMATION
  Report Type: Spontaneous
  Country: SE (occurrence: None)
  Receive Date: 20221103
  Receipt Date: 20221103
  Transmission Date: 20230112
  Serious: Yes (Disabling)
  Sender: FDA-Public Use
  Company Number: None

PATIENT
  Age: 35 Year
  Sex: Female
  Weight: 75 kg

DRUGS (3)
  1. METHOTREXATE [Suspect]
     Active Substance: METHOTREXATE
     Indication: Rheumatoid arthritis
     Dosage: STRENGTH: 2.5 MG (6 TABLETS ONCE A WEEK)
     Route: 065
     Dates: start: 20181206, end: 20201109
  2. FOLIC ACID EVOLAN [Concomitant]
     Dosage: STRENGTH: 5 MG (5 MG 1 TABLET ONCE A WEEK, ONE DAY AFTER THE METHOTREXATE DOSE)
     Route: 065
     Dates: start: 20181207, end: 20210623
  3. PREDNISOLONE [Concomitant]
     Active Substance: PREDNISOLONE
     Dosage: STRENGTH: 5 MG (5 MG 1 TABLET IN THE MORNING)
     Route: 065
     Dates: start: 20181206

REACTIONS (2)
  - Chronic fatigue syndrome [Recovering/Resolving]
  - Amnesia [Recovering/Resolving]

NARRATIVE: CASE EVENT DATE: 20190318
